FAERS Safety Report 20736951 (Version 2)
Quarter: 2022Q2

REPORT INFORMATION
  Report Type: Report from Study
  Country: US (occurrence: US)
  Receive Date: 20220421
  Receipt Date: 20220427
  Transmission Date: 20220721
  Serious: Yes (Hospitalization)
  Sender: FDA-Public Use
  Company Number: US-JAZZ-2022-US-012339

PATIENT
  Age: 73 Year
  Sex: Male
  Weight: 78.9 kg

DRUGS (2)
  1. LURBINECTEDIN [Suspect]
     Active Substance: LURBINECTEDIN
     Indication: Neoplasm malignant
     Dosage: 6.24 MILLIGRAM, Q6W
     Route: 042
     Dates: start: 20220405, end: 20220405
  2. LURBINECTEDIN [Suspect]
     Active Substance: LURBINECTEDIN
     Dosage: 3.2 MILLIGRAM/SQ. METER
     Route: 042

REACTIONS (1)
  - Skin infection [Recovered/Resolved]

NARRATIVE: CASE EVENT DATE: 20220413
